FAERS Safety Report 13796392 (Version 1)
Quarter: 2017Q3

REPORT INFORMATION
  Report Type: Spontaneous
  Country: US (occurrence: US)
  Receive Date: 20170726
  Receipt Date: 20170726
  Transmission Date: 20171127
  Serious: No
  Sender: FDA-Public Use
  Company Number: US-AMGEN-USASP2017022175

PATIENT
  Age: 44 Year
  Sex: Male

DRUGS (1)
  1. KYPROLIS [Suspect]
     Active Substance: CARFILZOMIB
     Indication: PLASMA CELL MYELOMA
     Dosage: 59 MG, UNK
     Route: 065
     Dates: start: 20161116

REACTIONS (3)
  - Infusion site pain [Unknown]
  - Infusion site extravasation [Unknown]
  - Infusion site swelling [Unknown]
